FAERS Safety Report 17015230 (Version 1)
Quarter: 2019Q4

REPORT INFORMATION
  Report Type: Spontaneous
  Country: GB (occurrence: GB)
  Receive Date: 20191111
  Receipt Date: 20191111
  Transmission Date: 20200122
  Serious: Yes (Other)
  Sender: FDA-Public Use
  Company Number: GB-ACCORD-160341

PATIENT
  Age: 52 Year
  Sex: Male
  Weight: 84 kg

DRUGS (6)
  1. FEXOFENADINE/FEXOFENADINE HYDROCHLORIDE [Concomitant]
     Dates: start: 20170809
  2. LANSOPRAZOLE. [Concomitant]
     Active Substance: LANSOPRAZOLE
     Dates: start: 20171023
  3. LOSARTAN. [Concomitant]
     Active Substance: LOSARTAN
     Dates: start: 20171129
  4. RAMIPRIL. [Suspect]
     Active Substance: RAMIPRIL
     Indication: PRODUCT USED FOR UNKNOWN INDICATION
     Dates: start: 20170706
  5. NAPROXEN. [Concomitant]
     Active Substance: NAPROXEN
     Dosage: TWICE DAILY
     Dates: start: 20171129
  6. MIRTAZAPINE. [Concomitant]
     Active Substance: MIRTAZAPINE
     Dates: start: 20170620

REACTIONS (2)
  - Erectile dysfunction [Recovering/Resolving]
  - Cough [Unknown]

NARRATIVE: CASE EVENT DATE: 20171205
